FAERS Safety Report 18797772 (Version 2)
Quarter: 2021Q1

REPORT INFORMATION
  Report Type: Spontaneous
  Country: JP (occurrence: JP)
  Receive Date: 20210128
  Receipt Date: 20210201
  Transmission Date: 20210419
  Serious: Yes (Other)
  Sender: FDA-Public Use
  Company Number: JP-BRISTOL-MYERS SQUIBB COMPANY-BMS-2021-002763

PATIENT
  Age: 69 Year
  Sex: Male

DRUGS (4)
  1. CARBOPLATIN. [Suspect]
     Active Substance: CARBOPLATIN
     Indication: ADENOCARCINOMA
     Dosage: UNK
     Route: 065
     Dates: start: 202012
  2. PEMETREXED. [Suspect]
     Active Substance: PEMETREXED
     Indication: ADENOCARCINOMA
     Dosage: UNK
     Route: 065
     Dates: start: 202012
  3. OPDIVO [Suspect]
     Active Substance: NIVOLUMAB
     Indication: ADENOCARCINOMA
     Dosage: UNK
     Route: 041
     Dates: start: 202012
  4. YERVOY [Suspect]
     Active Substance: IPILIMUMAB
     Indication: ADENOCARCINOMA
     Dosage: UNK
     Route: 041
     Dates: start: 202012

REACTIONS (6)
  - Febrile neutropenia [Recovering/Resolving]
  - Epistaxis [Recovering/Resolving]
  - Thrombocytopenia [Recovering/Resolving]
  - White blood cell count decreased [Recovering/Resolving]
  - Pneumothorax [Unknown]
  - Rash [Recovered/Resolved]

NARRATIVE: CASE EVENT DATE: 20201217
